FAERS Safety Report 8376273 (Version 2)
Quarter: 2013Q1

REPORT INFORMATION
  Report Type: Report from Study
  Country: US (occurrence: US)
  Receive Date: 20120129
  Receipt Date: 20130130
  Transmission Date: 20140127
  Serious: No
  Sender: FDA-Public Use
  Company Number: US-ABBOTT-11P-163-0872790-00

PATIENT
  Age: 15 None
  Sex: Female

DRUGS (11)
  1. HUMIRA 40 MG/0.8 ML PEN [Suspect]
     Indication: CROHN^S DISEASE
     Dates: start: 20110719
  2. HUMIRA 40 MG/0.8 ML PEN [Suspect]
     Route: 050
  3. 6-MP [Concomitant]
     Indication: CROHN^S DISEASE
  4. IRON [Concomitant]
     Indication: IRON DEFICIENCY
     Dates: start: 2011
  5. RANITIDINE [Concomitant]
     Indication: GASTROOESOPHAGEAL REFLUX DISEASE
  6. AMITRIPTYLINE [Concomitant]
     Indication: IRRITABLE BOWEL SYNDROME
  7. STEROIDS [Concomitant]
     Indication: PRODUCT USED FOR UNKNOWN INDICATION
     Dosage: TAPERED OFF
  8. MERCAPTOPURINE [Concomitant]
     Indication: CROHN^S DISEASE
  9. OMEPRAZOLE [Concomitant]
     Indication: GASTROOESOPHAGEAL REFLUX DISEASE
  10. OMEPRAZOLE [Concomitant]
     Indication: CROHN^S DISEASE
  11. ASACOL [Concomitant]
     Indication: CROHN^S DISEASE

REACTIONS (11)
  - Red blood cell sedimentation rate increased [Not Recovered/Not Resolved]
  - C-reactive protein increased [Not Recovered/Not Resolved]
  - Anaemia [Not Recovered/Not Resolved]
  - Abdominal pain [Not Recovered/Not Resolved]
  - Inflammation [Not Recovered/Not Resolved]
  - Crohn^s disease [Recovering/Resolving]
  - Drug ineffective [Unknown]
  - Psoriasis [Not Recovered/Not Resolved]
  - Pruritus [Not Recovered/Not Resolved]
  - Psoriasis [Not Recovered/Not Resolved]
  - Off label use [Not Recovered/Not Resolved]
